FAERS Safety Report 15610018 (Version 1)
Quarter: 2018Q4

REPORT INFORMATION
  Report Type: Spontaneous
  Country: US (occurrence: US)
  Receive Date: 20181113
  Receipt Date: 20181113
  Transmission Date: 20190205
  Serious: Yes (Hospitalization, Other)
  Sender: FDA-Public Use
  Company Number: US-PFIZER INC-2018458375

PATIENT
  Age: 64 Year
  Sex: Male
  Weight: 95.25 kg

DRUGS (1)
  1. XELJANZ XR [Suspect]
     Active Substance: TOFACITINIB CITRATE
     Dosage: 11 MG, UNK
     Dates: end: 201808

REACTIONS (3)
  - Aneurysm [Unknown]
  - Poor peripheral circulation [Not Recovered/Not Resolved]
  - Wound dehiscence [Unknown]

NARRATIVE: CASE EVENT DATE: 20180830
